FAERS Safety Report 21533105 (Version 1)
Quarter: 2022Q4

REPORT INFORMATION
  Report Type: Spontaneous
  Country: FR (occurrence: FR)
  Receive Date: 20221101
  Receipt Date: 20221101
  Transmission Date: 20230113
  Serious: Yes (Hospitalization)
  Sender: FDA-Public Use
  Company Number: FR-AFSSAPS-RE20221407

PATIENT
  Age: 87 Year
  Sex: Female
  Weight: 66 kg

DRUGS (7)
  1. DIAZEPAM [Suspect]
     Active Substance: DIAZEPAM
     Indication: Anxiety
     Dosage: 10 MILLIGRAM, ONCE A DAY
     Route: 048
  2. FUROSEMIDE [Suspect]
     Active Substance: FUROSEMIDE
     Indication: Hypertension
     Dosage: 40 MILLIGRAM, ONCE A DAY
     Route: 048
  3. NEBIVOLOL [Suspect]
     Active Substance: NEBIVOLOL
     Indication: Hypertension
     Dosage: 2.5 MILLIGRAM, ONCE A DAY
     Route: 048
  4. RAMIPRIL [Suspect]
     Active Substance: RAMIPRIL
     Indication: Hypertension
     Dosage: 5 MILLIGRAM, ONCE A DAY
     Route: 048
     Dates: end: 20220601
  5. ACTONEL [Concomitant]
     Active Substance: RISEDRONATE SODIUM
     Indication: Product used for unknown indication
     Dosage: UNK
     Route: 065
  6. Transipeg [Concomitant]
     Indication: Product used for unknown indication
     Dosage: UNK
     Route: 065
  7. ZOLPIDEM [Concomitant]
     Active Substance: ZOLPIDEM TARTRATE
     Indication: Product used for unknown indication
     Dosage: UNK
     Route: 065

REACTIONS (2)
  - Hypotension [Recovered/Resolved]
  - Fall [Recovered/Resolved]

NARRATIVE: CASE EVENT DATE: 20220524
